FAERS Safety Report 4883268-7 (Version None)
Quarter: 2006Q1

REPORT INFORMATION
  Report Type: 
  Country: None (occurrence: None)
  Receive Date: 20060117
  Receipt Date: 20060117
  Transmission Date: 20060701
  Serious: Yes (Disabling)
  Sender: FDA-Public Use
  Company Number: None

PATIENT
  Sex: Female
  Weight: 52.1637 kg

DRUGS (1)
  1. ORTHO EVRA [Suspect]
     Indication: CONTRACEPTION
     Dosage: 1 PATCH EVERY WEEK TRANSDERMAL
     Route: 062
     Dates: start: 20050818, end: 20050919

REACTIONS (4)
  - CHEST PAIN [None]
  - FIBRIN D DIMER INCREASED [None]
  - HEADACHE [None]
  - PRURITUS [None]
